FAERS Safety Report 9860620 (Version 2)
Quarter: 2014Q1

REPORT INFORMATION
  Report Type: Spontaneous
  Country: NZ (occurrence: NZ)
  Receive Date: 20140202
  Receipt Date: 20140202
  Transmission Date: 20141002
  Serious: No
  Sender: FDA-Public Use
  Company Number: NZ-ALLERGAN-1216240US

PATIENT
  Sex: Male

DRUGS (3)
  1. BOTOX [Suspect]
     Indication: SKIN WRINKLING
     Dosage: UNK, SINGLE
     Route: 030
     Dates: start: 20121015, end: 20121015
  2. BOTOX [Suspect]
     Indication: SKIN WRINKLING
     Dosage: 14 UNITS, SINGLE
     Route: 030
     Dates: start: 20121015, end: 20121015
  3. BOTOX [Suspect]
     Dosage: 36 UNITS, SINGLE
     Route: 030

REACTIONS (3)
  - Inappropriate schedule of drug administration [Unknown]
  - Drug ineffective [Unknown]
  - Wrong technique in drug usage process [Unknown]
